FAERS Safety Report 17302677 (Version 4)
Quarter: 2020Q3

REPORT INFORMATION
  Report Type: Report from Study
  Country: US (occurrence: US)
  Receive Date: 20200122
  Receipt Date: 20200824
  Transmission Date: 20201102
  Serious: Yes (Hospitalization, Disabling, Other)
  Sender: FDA-Public Use
  Company Number: US-GILEAD-2020-0447495

PATIENT
  Age: 23 Year
  Sex: Female

DRUGS (9)
  1. AZTREONAM LYSINE [Suspect]
     Active Substance: AZTREONAM LYSINE
     Indication: CYSTIC FIBROSIS
     Dosage: 75 MG, TID, EVERY OTHER MONTH
     Route: 055
     Dates: start: 20180426
  2. ALBUTEROL [SALBUTAMOL] [Concomitant]
     Active Substance: ALBUTEROL
  3. VALPORAL [VALPROIC ACID] [Concomitant]
  4. AZTREONAM LYSINE [Suspect]
     Active Substance: AZTREONAM LYSINE
     Indication: BRONCHIECTASIS
     Dosage: UNK UNK, TID; QOM
     Route: 055
     Dates: start: 20181109
  5. TRILEPTAL [Concomitant]
     Active Substance: OXCARBAZEPINE
  6. BUDESONIDE. [Concomitant]
     Active Substance: BUDESONIDE
  7. IPRATROPIUM [Concomitant]
     Active Substance: IPRATROPIUM
  8. ZYRTEC [Concomitant]
     Active Substance: CETIRIZINE HYDROCHLORIDE
  9. BACLOFEN. [Concomitant]
     Active Substance: BACLOFEN

REACTIONS (6)
  - Disease complication [Recovered/Resolved with Sequelae]
  - Pyrexia [Unknown]
  - Product dose omission issue [Recovered/Resolved]
  - Pneumonia [Not Recovered/Not Resolved]
  - Dyspnoea [Unknown]
  - Pyrexia [Recovered/Resolved with Sequelae]

NARRATIVE: CASE EVENT DATE: 202001
